FAERS Safety Report 15896667 (Version 1)
Quarter: 2019Q1

REPORT INFORMATION
  Report Type: Spontaneous
  Country: US (occurrence: US)
  Receive Date: 20190131
  Receipt Date: 20190131
  Transmission Date: 20190417
  Serious: No
  Sender: FDA-Public Use
  Company Number: US-PFIZER INC-2019037439

PATIENT
  Age: 62 Year
  Sex: Male

DRUGS (2)
  1. ALPHA LIPOIC ACID [Suspect]
     Active Substance: .ALPHA.-LIPOIC ACID
     Indication: SUPPLEMENTATION THERAPY
     Dosage: 300 MG, 3X/DAY
  2. LYRICA [Suspect]
     Active Substance: PREGABALIN
     Indication: DIABETIC NEUROPATHY
     Dosage: 150 MG, 3X/DAY

REACTIONS (6)
  - Alcohol interaction [Unknown]
  - Osteoporosis [Unknown]
  - Feeding disorder [Unknown]
  - Gastrooesophageal reflux disease [Unknown]
  - Somnolence [Unknown]
  - Weight decreased [Recovered/Resolved]
